FAERS Safety Report 6773416-6 (Version None)
Quarter: 2010Q2

REPORT INFORMATION
  Report Type: 
  Country: None (occurrence: None)
  Receive Date: 20100616
  Receipt Date: 20100430
  Transmission Date: 20101027
  Serious: No
  Sender: FDA-Public Use
  Company Number: US-ABBOTT-10P-163-0642527-00

PATIENT
  Sex: Female
  Weight: 74.002 kg

DRUGS (6)
  1. TRILIPIX [Suspect]
     Indication: BLOOD CHOLESTEROL INCREASED
     Dates: start: 20100301
  2. CRESTOR [Concomitant]
     Indication: BLOOD CHOLESTEROL INCREASED
     Dates: start: 20100301
  3. ATENOLOL [Concomitant]
     Indication: HYPERTENSION
     Dosage: UNKNOWN
  4. UNITHROID [Concomitant]
     Indication: HYPOTHYROIDISM
  5. DETROL LA [Concomitant]
     Indication: BLADDER SPASM
  6. PREMARIN [Concomitant]
     Indication: MENOPAUSE

REACTIONS (3)
  - INFLUENZA LIKE ILLNESS [None]
  - MYALGIA [None]
  - TENDERNESS [None]
